FAERS Safety Report 7590112-6 (Version None)
Quarter: 2011Q3

REPORT INFORMATION
  Report Type: 
  Country: None (occurrence: None)
  Receive Date: 20110705
  Receipt Date: 20110627
  Transmission Date: 20111222
  Serious: Yes (Hospitalization, Other)
  Sender: FDA-Public Use
  Company Number: B0729721A

PATIENT
  Sex: Female

DRUGS (4)
  1. ZOLPIDEM [Suspect]
     Dosage: 100MG PER DAY
     Route: 048
  2. PHENOBARBITAL TAB [Suspect]
     Dosage: 52IUAX PER DAY
     Route: 048
  3. PAXIL [Suspect]
     Dosage: 430MG PER DAY
     Route: 048
  4. PHENOBARBITAL TAB [Concomitant]

REACTIONS (5)
  - LACERATION [None]
  - OVERDOSE [None]
  - LOSS OF CONSCIOUSNESS [None]
  - HYPOTENSION [None]
  - GLOSSOPTOSIS [None]
